FAERS Safety Report 5165772-X (Version None)
Quarter: 2006Q4

REPORT INFORMATION
  Report Type: 
  Country: None (occurrence: None)
  Receive Date: 20061128
  Receipt Date: 20061108
  Transmission Date: 20070319
  Serious: Yes (Other)
  Sender: FDA-Public Use
  Company Number: 2006SP005996

PATIENT
  Age: 48 Year
  Sex: Female
  Weight: 65 kg

DRUGS (8)
  1. TEMODAR [Suspect]
     Indication: GLIOBLASTOMA MULTIFORME
     Dosage: SEE IMAGE
     Route: 048
     Dates: start: 20060830, end: 20061012
  2. TEMODAR [Suspect]
  3. TEMODAR [Suspect]
  4. DECADRON [Concomitant]
  5. KEPPRA [Concomitant]
  6. CODEINE [Concomitant]
  7. DILANTIN [Concomitant]
  8. RADIATION [Concomitant]

REACTIONS (1)
  - DEEP VEIN THROMBOSIS [None]
